FAERS Safety Report 21533664 (Version 1)
Quarter: 2022Q4

REPORT INFORMATION
  Report Type: Spontaneous
  Country: CN (occurrence: CN)
  Receive Date: 20221101
  Receipt Date: 20221101
  Transmission Date: 20230113
  Serious: Yes (Life-Threatening, Hospitalization, Other)
  Sender: FDA-Public Use
  Company Number: CN-MankindUS-000040

PATIENT
  Age: 38 Year
  Sex: Female

DRUGS (1)
  1. AMITRIPTYLINE [Suspect]
     Active Substance: AMITRIPTYLINE
     Dosage: OVERDOSE OF AMITRIPTYLINE (ABOUT 100 TABLETS)
     Dates: start: 20211028

REACTIONS (7)
  - Intentional overdose [Unknown]
  - Guillain-Barre syndrome [Recovered/Resolved]
  - Pneumonia aspiration [Recovered/Resolved]
  - Klebsiella infection [Recovered/Resolved]
  - Coma [Recovered/Resolved]
  - Septic shock [Recovered/Resolved]
  - Brain oedema [Recovered/Resolved]

NARRATIVE: CASE EVENT DATE: 20211028
